FAERS Safety Report 9022201 (Version 2)
Quarter: 2013Q3

REPORT INFORMATION
  Report Type: Spontaneous
  Country: FR (occurrence: FR)
  Receive Date: 20130118
  Receipt Date: 20130919
  Transmission Date: 20140515
  Serious: Yes (Life-Threatening, Hospitalization)
  Sender: FDA-Public Use
  Company Number: FR-SANOFI-AVENTIS-2013SA003273

PATIENT
  Age: 1 Day
  Sex: Female
  Weight: 4.19 kg

DRUGS (6)
  1. TERALITHE [Suspect]
     Indication: BIPOLAR I DISORDER
     Route: 064
     Dates: start: 20120214, end: 20120415
  2. LARGACTIL [Suspect]
     Indication: BIPOLAR I DISORDER
     Dosage: STRENGTH: 4% DROPS
     Route: 064
     Dates: start: 20120119, end: 20120415
  3. STILNOX [Suspect]
     Indication: BIPOLAR I DISORDER
     Dosage: STRENGTH: 10 MG
     Route: 064
     Dates: start: 20120119, end: 20120415
  4. IMOVANE [Suspect]
     Indication: BIPOLAR I DISORDER
     Dosage: STRENGTH: 7.5 MG DOSE:0.5 UNIT(S)
     Route: 064
     Dates: start: 20120119, end: 20120415
  5. QUETIAPINE [Suspect]
     Indication: BIPOLAR I DISORDER
     Dosage: STRENGTH: 300 MG
     Route: 064
     Dates: start: 20120119, end: 20120415
  6. SERESTA [Suspect]
     Indication: BIPOLAR I DISORDER
     Dosage: STRENGTH: 10 MG
     Route: 064
     Dates: start: 20120119, end: 20120415

REACTIONS (9)
  - Hypoglycaemia [Recovered/Resolved]
  - Jaundice [Recovered/Resolved]
  - Weight gain poor [Recovered/Resolved]
  - Macrosomia [Recovered/Resolved]
  - Neonatal respiratory distress syndrome [Recovered/Resolved]
  - Tachycardia [Recovered/Resolved]
  - Withdrawal syndrome [Recovered/Resolved]
  - Hypotonia [Recovered/Resolved]
  - Psychomotor retardation [Not Recovered/Not Resolved]
